FAERS Safety Report 10582587 (Version 3)
Quarter: 2015Q3

REPORT INFORMATION
  Report Type: Report from Study
  Country: US (occurrence: US)
  Receive Date: 20141113
  Receipt Date: 20150818
  Transmission Date: 20151125
  Serious: No
  Sender: FDA-Public Use
  Company Number: US-GILEAD-2014-0122123

PATIENT
  Age: 59 Year
  Sex: Female

DRUGS (1)
  1. AMBRISENTAN [Suspect]
     Active Substance: AMBRISENTAN
     Indication: PRODUCT USED FOR UNKNOWN INDICATION
     Dosage: 5 MG, QD
     Route: 065
     Dates: start: 20120201

REACTIONS (4)
  - Oxygen saturation decreased [Unknown]
  - Dyspnoea [Unknown]
  - Fatigue [Unknown]
  - Insomnia [Unknown]
